FAERS Safety Report 10662153 (Version 1)
Quarter: 2014Q4

REPORT INFORMATION
  Report Type: Spontaneous
  Country: US (occurrence: None)
  Receive Date: 20141217
  Receipt Date: 20141217
  Transmission Date: 20150529
  Serious: No
  Sender: FDA-Public Use
  Company Number: None

PATIENT
  Age: 85 Year
  Sex: Female

DRUGS (1)
  1. HUMIRA [Suspect]
     Active Substance: ADALIMUMAB
     Indication: RHEUMATOID ARTHRITIS
     Dosage: Q2W
     Dates: start: 20111111, end: 20141212

REACTIONS (3)
  - Rash pruritic [None]
  - Hypersensitivity [None]
  - Formication [None]

NARRATIVE: CASE EVENT DATE: 20141212
